FAERS Safety Report 7739985-4 (Version None)
Quarter: 2011Q3

REPORT INFORMATION
  Report Type: 
  Country: None (occurrence: None)
  Receive Date: 20110909
  Receipt Date: 20110907
  Transmission Date: 20111222
  Serious: Yes (Death)
  Sender: FDA-Public Use
  Company Number: PHEH2011US02857

PATIENT
  Sex: Male

DRUGS (1)
  1. RECLAST [Suspect]
     Dosage: 5 MG, YEARLY
     Route: 042
     Dates: start: 20100908

REACTIONS (4)
  - PNEUMONIA [None]
  - DEMENTIA ALZHEIMER'S TYPE [None]
  - ASPIRATION [None]
  - DEMENTIA [None]
